FAERS Safety Report 18237976 (Version 2)
Quarter: 2020Q3

REPORT INFORMATION
  Report Type: Spontaneous
  Country: US (occurrence: US)
  Receive Date: 20200907
  Receipt Date: 20200917
  Transmission Date: 20201103
  Serious: No
  Sender: FDA-Public Use
  Company Number: US-GW PHARMA-202009USGW02993

PATIENT

DRUGS (6)
  1. EPIDIOLEX [Suspect]
     Active Substance: CANNABIDIOL
     Indication: IDIOPATHIC GENERALISED EPILEPSY
     Dosage: 28.8 MG/KG/DAY, 360 MILLIGRAM, BID
     Route: 048
     Dates: start: 202002, end: 2020
  2. CLONAZEPAM. [Concomitant]
     Active Substance: CLONAZEPAM
     Indication: PRODUCT USED FOR UNKNOWN INDICATION
     Dosage: UNK
     Route: 065
  3. EPIDIOLEX [Suspect]
     Active Substance: CANNABIDIOL
     Indication: STATUS EPILEPTICUS
     Dosage: 30 MG/KG/DAY, 750 MILLIGRAM, QD (DOSE INCREASED )
     Route: 048
     Dates: start: 2020, end: 2020
  4. EPIDIOLEX [Suspect]
     Active Substance: CANNABIDIOL
     Dosage: 20 MG/KG/DAY, 500 MILLIGRAM, QD (DOSE DECREASED )
     Route: 048
     Dates: start: 2020
  5. DIASTAT [DIAZEPAM] [Concomitant]
     Indication: PRODUCT USED FOR UNKNOWN INDICATION
     Dosage: UNK
     Route: 065
  6. TOPAMAX [Concomitant]
     Active Substance: TOPIRAMATE
     Indication: PRODUCT USED FOR UNKNOWN INDICATION
     Dosage: UNK
     Route: 065
     Dates: start: 202002

REACTIONS (5)
  - Decreased appetite [Not Recovered/Not Resolved]
  - Prescribed overdose [Unknown]
  - Weight decreased [Not Recovered/Not Resolved]
  - Diarrhoea [Not Recovered/Not Resolved]
  - Product use in unapproved indication [Unknown]

NARRATIVE: CASE EVENT DATE: 202002
